FAERS Safety Report 6581344-4 (Version None)
Quarter: 2010Q1

REPORT INFORMATION
  Report Type: 
  Country: None (occurrence: None)
  Receive Date: 20100215
  Receipt Date: 20100202
  Transmission Date: 20100710
  Serious: Yes (Hospitalization, Other)
  Sender: FDA-Public Use
  Company Number: JP-JNJFOC-20100106367

PATIENT
  Sex: Male

DRUGS (10)
  1. CRAVIT [Suspect]
     Indication: CYSTITIS HAEMORRHAGIC
     Route: 048
  2. TRANEXAMIC ACID [Suspect]
     Indication: HAEMATURIA
     Route: 048
  3. SENNARIDE [Concomitant]
     Indication: CONSTIPATION
     Route: 048
  4. VASOLATOR [Concomitant]
     Indication: ATRIAL FIBRILLATION
     Route: 062
  5. VASOLATOR [Concomitant]
     Indication: CARDIAC FAILURE
     Route: 062
  6. UBIDECARENONE [Concomitant]
     Indication: CARDIAC FAILURE
     Route: 048
  7. PILSICAINIDE HYDROCHLORIDE [Concomitant]
     Indication: ARRHYTHMIA
     Route: 048
  8. CHOI-JOKI-TO [Concomitant]
     Indication: CONSTIPATION
     Route: 048
  9. RIKKUNSHI-TO [Concomitant]
     Indication: DECREASED APPETITE
     Route: 048
  10. DIGOXIN [Concomitant]
     Indication: CARDIAC FAILURE
     Route: 048

REACTIONS (3)
  - CONVULSION [None]
  - CYANOSIS [None]
  - DYSPNOEA [None]
